FAERS Safety Report 13238648 (Version 2)
Quarter: 2017Q1

REPORT INFORMATION
  Report Type: Spontaneous
  Country: MY (occurrence: MY)
  Receive Date: 20170216
  Receipt Date: 20170221
  Transmission Date: 20170428
  Serious: Yes (Hospitalization)
  Sender: FDA-Public Use
  Company Number: MY-ASTELLAS-2017US005659

PATIENT
  Sex: Female

DRUGS (23)
  1. ERLOTINIB [Suspect]
     Active Substance: ERLOTINIB
     Route: 065
     Dates: start: 20151127
  2. ERLOTINIB [Suspect]
     Active Substance: ERLOTINIB
     Route: 065
     Dates: start: 20160126
  3. ERLOTINIB [Suspect]
     Active Substance: ERLOTINIB
     Route: 065
     Dates: start: 20160803
  4. ERLOTINIB [Suspect]
     Active Substance: ERLOTINIB
     Route: 065
     Dates: start: 20161011
  5. ERLOTINIB [Suspect]
     Active Substance: ERLOTINIB
     Route: 065
     Dates: start: 20161103
  6. ERLOTINIB [Suspect]
     Active Substance: ERLOTINIB
     Route: 065
     Dates: start: 20161202
  7. ERLOTINIB [Suspect]
     Active Substance: ERLOTINIB
     Route: 065
     Dates: start: 20151218
  8. ERLOTINIB [Suspect]
     Active Substance: ERLOTINIB
     Route: 065
     Dates: start: 20160407
  9. ERLOTINIB [Suspect]
     Active Substance: ERLOTINIB
     Route: 065
     Dates: start: 20170105
  10. ERLOTINIB [Suspect]
     Active Substance: ERLOTINIB
     Dosage: 100 MG (100 MG OD X 1/12), ONCE DAILY
     Route: 065
     Dates: start: 20151015
  11. ERLOTINIB [Suspect]
     Active Substance: ERLOTINIB
     Route: 065
     Dates: start: 20160906
  12. ERLOTINIB [Suspect]
     Active Substance: ERLOTINIB
     Dosage: 100 MG (100 MG OD X 1/12), ONCE DAILY
     Route: 065
     Dates: start: 20150806
  13. ERLOTINIB [Suspect]
     Active Substance: ERLOTINIB
     Dosage: 150 MG (150 MG OD X 1/12), ONCE DAILY
     Route: 065
     Dates: start: 20150305
  14. ERLOTINIB [Suspect]
     Active Substance: ERLOTINIB
     Route: 065
     Dates: start: 20160415
  15. ERLOTINIB [Suspect]
     Active Substance: ERLOTINIB
     Route: 065
     Dates: start: 20170202
  16. ERLOTINIB [Suspect]
     Active Substance: ERLOTINIB
     Indication: LUNG CARCINOMA CELL TYPE UNSPECIFIED STAGE IV
     Dosage: 150 MG (150 MG OD X 1/12), ONCE DAILY
     Route: 065
     Dates: start: 20150204
  17. ERLOTINIB [Suspect]
     Active Substance: ERLOTINIB
     Dosage: 100 MG (100 MG OD X 1/12), ONCE DAILY
     Route: 065
     Dates: start: 20150605
  18. ERLOTINIB [Suspect]
     Active Substance: ERLOTINIB
     Route: 065
     Dates: start: 20160704
  19. ERLOTINIB [Suspect]
     Active Substance: ERLOTINIB
     Route: 065
     Dates: start: 20160512
  20. ERLOTINIB [Suspect]
     Active Substance: ERLOTINIB
     Dosage: 100 MG (100 MG OD X 1/12), ONCE DAILY
     Route: 065
     Dates: start: 20150722
  21. ERLOTINIB [Suspect]
     Active Substance: ERLOTINIB
     Dosage: 100 MG (100 MG OD X 1/12), ONCE DAILY
     Route: 065
     Dates: start: 20150925
  22. ERLOTINIB [Suspect]
     Active Substance: ERLOTINIB
     Route: 065
     Dates: start: 20160307
  23. ERLOTINIB [Suspect]
     Active Substance: ERLOTINIB
     Route: 065
     Dates: start: 20160609

REACTIONS (8)
  - Vulvitis [Unknown]
  - Acne [Unknown]
  - Stomatitis [Unknown]
  - Diarrhoea [Unknown]
  - Skin reaction [Unknown]
  - Hypophagia [Unknown]
  - Therapy partial responder [Unknown]
  - Headache [Unknown]

NARRATIVE: CASE EVENT DATE: 20150204
